FAERS Safety Report 5294400-8 (Version None)
Quarter: 2007Q2

REPORT INFORMATION
  Report Type: 
  Country: None (occurrence: None)
  Receive Date: 20070412
  Receipt Date: 20070328
  Transmission Date: 20071010
  Serious: Yes (Other)
  Sender: FDA-Public Use
  Company Number: ZA-AVENTIS-200712702GDDC

PATIENT
  Sex: Female

DRUGS (2)
  1. KETEK [Suspect]
     Route: 048
  2. TAVANIC [Suspect]
     Dosage: DOSE: UNK
     Route: 048

REACTIONS (1)
  - STEVENS-JOHNSON SYNDROME [None]
